FAERS Safety Report 7654715-2 (Version None)
Quarter: 2011Q3

REPORT INFORMATION
  Report Type: 
  Country: None (occurrence: None)
  Receive Date: 20110804
  Receipt Date: 20110727
  Transmission Date: 20111222
  Serious: Yes (Other)
  Sender: FDA-Public Use
  Company Number: US-BIOGENIDEC-2011BI028572

PATIENT
  Sex: Female

DRUGS (3)
  1. AVONEX [Suspect]
     Indication: MULTIPLE SCLEROSIS
     Route: 030
     Dates: start: 20070610, end: 20080530
  2. AVONEX [Suspect]
     Route: 030
     Dates: start: 20041005, end: 20050401
  3. AVONEX [Suspect]
     Route: 030
     Dates: start: 19980617, end: 20020417

REACTIONS (3)
  - MATERNAL EXPOSURE DURING PREGNANCY [None]
  - ECTOPIC PREGNANCY [None]
  - ABORTION SPONTANEOUS [None]
